FAERS Safety Report 9221650 (Version 2)
Quarter: 2013Q2

REPORT INFORMATION
  Report Type: Spontaneous
  Country: US (occurrence: US)
  Receive Date: 20130410
  Receipt Date: 20130502
  Transmission Date: 20140414
  Serious: No
  Sender: FDA-Public Use
  Company Number: US-009507513-1304USA003592

PATIENT
  Sex: Female

DRUGS (2)
  1. REBETOL [Suspect]
     Indication: HEPATITIS C
     Dosage: UNK
     Dates: start: 20030101, end: 20030301
  2. PEGINTRON [Suspect]
     Indication: HEPATITIS C
     Dosage: UNK
     Dates: start: 20030101, end: 20031201

REACTIONS (6)
  - Vision blurred [Unknown]
  - Tremor [Unknown]
  - Blood disorder [Unknown]
  - Lymphatic disorder [Unknown]
  - Drug ineffective [Unknown]
  - Therapeutic response decreased [Unknown]
